FAERS Safety Report 5933570-2 (Version None)
Quarter: 2008Q4

REPORT INFORMATION
  Report Type: 
  Country: None (occurrence: None)
  Receive Date: 20081024
  Receipt Date: 20081009
  Transmission Date: 20090506
  Serious: Yes (Hospitalization, Other)
  Sender: FDA-Public Use
  Company Number: 2008S1003180

PATIENT
  Age: 27 Year
  Sex: Male

DRUGS (3)
  1. FLUOXETINE [Suspect]
     Indication: DEPRESSION
  2. ANTIBIOTICS [Concomitant]
  3. HALOPERIDOL [Suspect]

REACTIONS (8)
  - BLOOD CREATINE PHOSPHOKINASE INCREASED [None]
  - DRUG INEFFECTIVE [None]
  - HYPERTENSION [None]
  - PSYCHOMOTOR HYPERACTIVITY [None]
  - RESPIRATORY FAILURE [None]
  - RESPIRATORY TRACT INFECTION [None]
  - SALIVARY HYPERSECRETION [None]
  - SEROTONIN SYNDROME [None]
